FAERS Safety Report 11724309 (Version 1)
Quarter: 2015Q4

REPORT INFORMATION
  Report Type: Spontaneous
  Country: FR (occurrence: FR)
  Receive Date: 20151111
  Receipt Date: 20151111
  Transmission Date: 20160304
  Serious: Yes (Hospitalization)
  Sender: FDA-Public Use
  Company Number: FR-PFIZER INC-2015378979

PATIENT
  Age: 59 Year
  Sex: Male

DRUGS (9)
  1. VELMETIA [Concomitant]
     Active Substance: METFORMIN\SITAGLIPTIN
  2. TEGRETOL [Concomitant]
     Active Substance: CARBAMAZEPINE
  3. KARDEGIC [Concomitant]
     Active Substance: ASPIRIN LYSINE
  4. ACUILIX [Suspect]
     Active Substance: HYDROCHLOROTHIAZIDE\QUINAPRIL HYDROCHLORIDE
     Indication: HYPERTENSION
     Dosage: UNK
     Route: 048
  5. TENORDATE [Concomitant]
     Active Substance: ATENOLOL\NIFEDIPINE
  6. XELEVIA [Concomitant]
     Active Substance: SITAGLIPTIN PHOSPHATE
     Indication: TYPE 2 DIABETES MELLITUS
     Route: 048
  7. TAHOR [Concomitant]
     Active Substance: ATORVASTATIN CALCIUM
  8. GLUCOPHAGE [Concomitant]
     Active Substance: METFORMIN HYDROCHLORIDE
     Indication: TYPE 2 DIABETES MELLITUS
     Route: 048
  9. AMAREL [Concomitant]
     Active Substance: GLIMEPIRIDE
     Indication: TYPE 2 DIABETES MELLITUS
     Route: 048

REACTIONS (6)
  - Blood creatinine increased [Unknown]
  - Hypotension [Unknown]
  - Acute kidney injury [Unknown]
  - Gastroenteritis [Unknown]
  - Hyperkalaemia [Unknown]
  - Acidosis [Unknown]
